FAERS Safety Report 16346036 (Version 2)
Quarter: 2019Q3

REPORT INFORMATION
  Report Type: Report from Study
  Country: JP (occurrence: JP)
  Receive Date: 20190523
  Receipt Date: 20190729
  Transmission Date: 20191004
  Serious: Yes (Hospitalization)
  Sender: FDA-Public Use
  Company Number: JP-ACTELION-A-CH2017-157107

PATIENT
  Age: 2 Year
  Sex: Male

DRUGS (15)
  1. OPSUMIT [Suspect]
     Active Substance: MACITENTAN
     Indication: PULMONARY ARTERIAL HYPERTENSION
     Dosage: 1 MG, BID
     Route: 048
     Dates: start: 20161124, end: 20170111
  2. ADCIRCA [Suspect]
     Active Substance: TADALAFIL
     Dosage: 10 MG, QD
     Route: 048
     Dates: start: 20180209
  3. OPSUMIT [Suspect]
     Active Substance: MACITENTAN
     Dosage: 2 MG, BID
     Route: 048
     Dates: start: 20180713
  4. VENTAVIS [Concomitant]
     Active Substance: ILOPROST
     Indication: PULMONARY ARTERIAL HYPERTENSION
  5. CARBOCISTEINE [Concomitant]
     Active Substance: CARBOCYSTEINE
  6. ONON [Concomitant]
     Active Substance: PRANLUKAST
  7. SHOSEIRYUTO [Concomitant]
     Active Substance: EPHEDRA SINICA STEM\HERBALS
  8. OPSUMIT [Suspect]
     Active Substance: MACITENTAN
     Dosage: 1.5 MG, BID
     Route: 048
     Dates: start: 20170112, end: 20180712
  9. UPTRAVI [Suspect]
     Active Substance: SELEXIPAG
     Dosage: 0.15 MG, BID
     Route: 048
     Dates: start: 20180601, end: 20180620
  10. ATARAX-P [Concomitant]
     Active Substance: HYDROXYZINE HYDROCHLORIDE
  11. UPTRAVI [Suspect]
     Active Substance: SELEXIPAG
     Dosage: 0.1 MG, BID
     Route: 048
     Dates: start: 20180424, end: 20180531
  12. UPTRAVI [Suspect]
     Active Substance: SELEXIPAG
     Dosage: 0.2 MG, BID
     Route: 048
     Dates: start: 20180621
  13. UPTRAVI [Suspect]
     Active Substance: SELEXIPAG
     Indication: PULMONARY ARTERIAL HYPERTENSION
     Dosage: 0.05 MG, BID
     Route: 048
     Dates: start: 20180328, end: 20180423
  14. ADCIRCA [Suspect]
     Active Substance: TADALAFIL
     Indication: PULMONARY ARTERIAL HYPERTENSION
     Dosage: 8 MG, QD
     Route: 048
     Dates: start: 20161204, end: 20180208
  15. OXYGEN. [Concomitant]
     Active Substance: OXYGEN

REACTIONS (11)
  - Pyrexia [Recovering/Resolving]
  - Anaemia [Not Recovered/Not Resolved]
  - Cough [Recovering/Resolving]
  - Aphthous ulcer [Recovering/Resolving]
  - Rhinorrhoea [Recovering/Resolving]
  - Pneumonia [Recovering/Resolving]
  - White blood cell count increased [Recovered/Resolved]
  - Platelet count increased [Recovered/Resolved]
  - Dysphagia [Recovering/Resolving]
  - Blood alkaline phosphatase increased [Recovered/Resolved]
  - Respiratory syncytial virus infection [Recovering/Resolving]

NARRATIVE: CASE EVENT DATE: 20161212
